FAERS Safety Report 7226873-5 (Version None)
Quarter: 2011Q1

REPORT INFORMATION
  Report Type: 
  Country: None (occurrence: None)
  Receive Date: 20110114
  Receipt Date: 20110113
  Transmission Date: 20110831
  Serious: Yes (Death, Life-Threatening, Hospitalization)
  Sender: FDA-Public Use
  Company Number: PHHO2011NL00733

PATIENT
  Sex: Male
  Weight: 93 kg

DRUGS (18)
  1. SANDIMMUNE [Suspect]
     Dosage: 225 MG, BID
     Route: 042
     Dates: start: 20101015, end: 20101022
  2. SANDIMMUNE [Suspect]
     Dosage: 200 MG, BID
     Route: 048
     Dates: start: 20101031, end: 20101101
  3. SANDIMMUNE [Suspect]
     Dosage: 200 MG, BID
     Route: 042
     Dates: start: 20101022, end: 20101025
  4. SANDIMMUNE [Suspect]
     Dosage: 100 MG, BID
     Route: 048
     Dates: start: 20101104, end: 20101105
  5. SANDIMMUNE [Suspect]
     Dosage: 100 MG, BID
     Route: 042
     Dates: start: 20101105, end: 20101105
  6. CYCLOPHOSPHAMIDE [Concomitant]
  7. SANDIMMUNE [Suspect]
     Dosage: 75 MG, BID
     Route: 042
     Dates: start: 20101105, end: 20101108
  8. SANDIMMUNE [Suspect]
     Dosage: 50 MG, BID
     Route: 042
     Dates: start: 20101108, end: 20101115
  9. SANDIMMUNE [Suspect]
     Dosage: 60 MG, BID
     Route: 042
     Dates: start: 20101115, end: 20101125
  10. SANDIMMUNE [Suspect]
     Dosage: 25 MG, QD
     Route: 048
     Dates: start: 20101203, end: 20101207
  11. SANDIMMUNE [Suspect]
     Dosage: 150 MG, BID
     Route: 042
     Dates: start: 20101026, end: 20101030
  12. SANDIMMUNE [Suspect]
     Dosage: 100 MG, BID
     Route: 042
     Dates: start: 20101030, end: 20101031
  13. MYCOPHENOLIC ACID [Suspect]
     Indication: TRANSPLANT
     Dosage: 2160 MG
     Route: 048
     Dates: start: 20101013
  14. SANDIMMUNE [Suspect]
     Indication: TRANSPLANT
     Dosage: 150 MG, BID
     Route: 042
     Dates: start: 20101008, end: 20101105
  15. SANDIMMUNE [Suspect]
     Dosage: 25 MG, BID
     Route: 042
     Dates: start: 20101125, end: 20101129
  16. SANDIMMUNE [Suspect]
     Dosage: 300 MG, BID
     Route: 042
     Dates: start: 20101011, end: 20101015
  17. SANDIMMUNE [Suspect]
     Dosage: 150 MG, BID
     Route: 048
     Dates: start: 20101101, end: 20101102
  18. IRRADIATION [Concomitant]

REACTIONS (1)
  - VENOOCCLUSIVE LIVER DISEASE [None]
